FAERS Safety Report 6970411-9 (Version None)
Quarter: 2010Q3

REPORT INFORMATION
  Report Type: 
  Country: None (occurrence: None)
  Receive Date: 20100908
  Receipt Date: 20100830
  Transmission Date: 20110219
  Serious: Yes (Other)
  Sender: FDA-Public Use
  Company Number: US-ASTRAZENECA-2010SE40779

PATIENT
  Age: 87 Year
  Sex: Female
  Weight: 40.8 kg

DRUGS (6)
  1. NEXIUM [Suspect]
     Indication: GASTROOESOPHAGEAL REFLUX DISEASE
     Route: 048
     Dates: start: 20060101
  2. ENTOCORT EC [Concomitant]
  3. NITROGLYCERIN [Concomitant]
  4. MIRTAZAPINE [Concomitant]
  5. ALLOPURINOL [Concomitant]
     Indication: GOUT
  6. CARAFATE [Concomitant]

REACTIONS (6)
  - ARTHRALGIA [None]
  - GAIT DISTURBANCE [None]
  - MUSCULAR WEAKNESS [None]
  - MYOCARDIAL INFARCTION [None]
  - TENDON PAIN [None]
  - WEIGHT DECREASED [None]
